FAERS Safety Report 9727837 (Version 1)
Quarter: 2013Q4

REPORT INFORMATION
  Report Type: Spontaneous
  Country: SE (occurrence: SE)
  Receive Date: 20131204
  Receipt Date: 20131204
  Transmission Date: 20140711
  Serious: Yes (Hospitalization)
  Sender: FDA-Public Use
  Company Number: SE-ROCHE-1309401

PATIENT
  Sex: Female

DRUGS (1)
  1. XELODA [Suspect]
     Indication: GASTROINTESTINAL NEOPLASM
     Dosage: STARTED IN SEP/2013
     Route: 065
     Dates: end: 2013

REACTIONS (4)
  - Infection susceptibility increased [Unknown]
  - Diarrhoea [Unknown]
  - Oral fungal infection [Unknown]
  - Alopecia [Unknown]
